FAERS Safety Report 10038060 (Version 1)
Quarter: 2014Q1

REPORT INFORMATION
  Report Type: Spontaneous
  Country: US (occurrence: None)
  Receive Date: 20140306
  Receipt Date: 20140306
  Transmission Date: 20141002
  Serious: Yes (Other)
  Sender: FDA-Public Use
  Company Number: 163-21880-13104668

PATIENT
  Age: 81 Year
  Sex: Female

DRUGS (4)
  1. REVLIMID (LENALIDOMIDE) (CAPSULES) [Suspect]
     Indication: PLASMA CELL MYELOMA
     Route: 048
     Dates: start: 20121011
  2. VELCADE (BORTEZOMIB) (INJECTION) [Concomitant]
  3. DECADRON (DEXAMETHASONE) (UNKNOWN) [Concomitant]
  4. NEUPOGEN (FILGRASTIM) (UNKNOWN) [Concomitant]

REACTIONS (1)
  - Deep vein thrombosis [None]
